FAERS Safety Report 20082603 (Version 1)
Quarter: 2021Q4

REPORT INFORMATION
  Report Type: Spontaneous
  Country: US (occurrence: US)
  Receive Date: 20211117
  Receipt Date: 20211117
  Transmission Date: 20220303
  Serious: No
  Sender: FDA-Public Use
  Company Number: US-AMGEN-USASP2021181478

PATIENT
  Age: 10 Year

DRUGS (1)
  1. BEVACIZUMAB [Suspect]
     Active Substance: BEVACIZUMAB
     Indication: Optic glioma
     Dosage: UNK
     Route: 065

REACTIONS (2)
  - Visual acuity reduced [Unknown]
  - Off label use [Unknown]
